FAERS Safety Report 4437719-2 (Version None)
Quarter: 2004Q3

REPORT INFORMATION
  Report Type: 
  Country: None (occurrence: None)
  Receive Date: 20040831
  Receipt Date: 20040510
  Transmission Date: 20050211
  Serious: No
  Sender: FDA-Public Use
  Company Number: 16811

PATIENT
  Age: 33 Year
  Sex: Female

DRUGS (2)
  1. ZOVIRAX [Suspect]
     Route: 061
     Dates: start: 20040508
  2. ACYCLOVIR [Concomitant]
     Route: 048

REACTIONS (2)
  - APPLICATION SITE BURNING [None]
  - VAGINAL PAIN [None]
